FAERS Safety Report 5292472-8 (Version None)
Quarter: 2007Q2

REPORT INFORMATION
  Report Type: 
  Country: None (occurrence: None)
  Receive Date: 20070403
  Receipt Date: 20061229
  Transmission Date: 20071010
  Serious: Yes (Congenital Anomaly)
  Sender: FDA-Public Use
  Company Number: 2007VX000867

PATIENT
  Sex: Male

DRUGS (3)
  1. PYRIDOSTIGMINE BROMIDE [Suspect]
     Dosage: 60 MG; Q8H; TRPL
     Route: 064
  2. 3, 4-DIAMINOPYRIDINE (3, 4-DIAMINOPYRIDINE) [Suspect]
     Dosage: SEE IMAGE
     Route: 064
  3. 3, 4-DIAMINOPYRIDINE (3, 4-DIAMINOPYRIDINE) [Suspect]
     Dosage: SEE IMAGE
     Route: 064

REACTIONS (2)
  - DRUG EXPOSURE DURING PREGNANCY [None]
  - UMBILICAL ARTERY HYPOPLASIA [None]
